FAERS Safety Report 18209679 (Version 1)
Quarter: 2020Q3

REPORT INFORMATION
  Report Type: Spontaneous
  Country: US (occurrence: US)
  Receive Date: 20200828
  Receipt Date: 20200828
  Transmission Date: 20201103
  Serious: Yes (Other)
  Sender: FDA-Public Use
  Company Number: US-PURDUE-USA-2020-0163707

PATIENT
  Age: 38 Year
  Sex: Male

DRUGS (2)
  1. OXYCONTIN [Suspect]
     Active Substance: OXYCODONE HYDROCHLORIDE
     Indication: PRODUCT USED FOR UNKNOWN INDICATION
     Dosage: 6X80 MG, DAILY
     Route: 048
     Dates: start: 200309
  2. NORCO [Suspect]
     Active Substance: ACETAMINOPHEN\HYDROCODONE BITARTRATE
     Indication: PRODUCT USED FOR UNKNOWN INDICATION
     Dosage: 30X10 MG, UNK
     Route: 048

REACTIONS (11)
  - Dependence [Unknown]
  - Anxiety [Unknown]
  - Depression [Unknown]
  - Mental impairment [Unknown]
  - Illness [Unknown]
  - Pain [Unknown]
  - Withdrawal syndrome [Unknown]
  - Hypoaesthesia [Unknown]
  - Tooth loss [Unknown]
  - Road traffic accident [Unknown]
  - Loss of consciousness [Unknown]

NARRATIVE: CASE EVENT DATE: 200408
